FAERS Safety Report 7487689-8 (Version None)
Quarter: 2011Q2

REPORT INFORMATION
  Report Type: 
  Country: None (occurrence: None)
  Receive Date: 20110511
  Receipt Date: 20110427
  Transmission Date: 20111010
  Serious: Yes (Hospitalization, Other)
  Sender: FDA-Public Use
  Company Number: 2011NA000036

PATIENT
  Age: 72 Year
  Sex: Female

DRUGS (4)
  1. NIFEDIPINE [Concomitant]
  2. DICLOFENAC SODIUM [Suspect]
     Indication: OSTEOARTHRITIS
  3. LISINOPRIL [Concomitant]
  4. DOXAZOSIN MESYLATE [Concomitant]

REACTIONS (2)
  - ILEAL ULCER [None]
  - ILEAL STENOSIS [None]
